FAERS Safety Report 23638745 (Version 3)
Quarter: 2024Q4

REPORT INFORMATION
  Report Type: Spontaneous
  Country: US (occurrence: US)
  Receive Date: 20240315
  Receipt Date: 20241206
  Transmission Date: 20250114
  Serious: No
  Sender: BRISTOL-MYERS SQUIBB COMPANY
  Company Number: US-BRISTOL-MYERS SQUIBB COMPANY-2024-041065

PATIENT
  Age: 51 Year
  Sex: Female

DRUGS (3)
  1. ORENCIA [Suspect]
     Active Substance: ABATACEPT
     Indication: Rheumatoid arthritis
     Route: 058
     Dates: start: 202402
  2. ORENCIA [Suspect]
     Active Substance: ABATACEPT
     Route: 058
     Dates: start: 202402
  3. DUPIXENT [Suspect]
     Active Substance: DUPILUMAB
     Indication: Eosinophilic oesophagitis
     Dosage: STRENGTH: 300MG/2ML.?(2-PK).
     Route: 058
     Dates: start: 202309

REACTIONS (7)
  - Fatigue [Unknown]
  - Abdominal discomfort [Unknown]
  - Headache [Unknown]
  - Joint swelling [Unknown]
  - Upper respiratory tract infection [Unknown]
  - Arthralgia [Unknown]
  - Injection site bruising [Recovered/Resolved]

NARRATIVE: CASE EVENT DATE: 20230101
